FAERS Safety Report 15329355 (Version 2)
Quarter: 2018Q4

REPORT INFORMATION
  Report Type: Spontaneous
  Country: IE (occurrence: IE)
  Receive Date: 20180829
  Receipt Date: 20181011
  Transmission Date: 20190204
  Serious: Yes (Death)
  Sender: FDA-Public Use
  Company Number: IE-MYLANLABS-2018M1063822

PATIENT
  Age: 24 Year
  Sex: Female

DRUGS (25)
  1. VANCOMYCIN [Suspect]
     Active Substance: VANCOMYCIN
     Indication: SEPSIS
  2. MEROPENEM. [Interacting]
     Active Substance: MEROPENEM
     Indication: DEVICE RELATED SEPSIS
  3. AZTREONAM. [Concomitant]
     Active Substance: AZTREONAM
     Indication: PRODUCT USED FOR UNKNOWN INDICATION
     Dosage: UNK
     Route: 065
  4. PROPOFOL. [Concomitant]
     Active Substance: PROPOFOL
     Indication: STATUS EPILEPTICUS
  5. SODIUM VALPROATE [Concomitant]
     Active Substance: VALPROATE SODIUM
     Indication: STATUS EPILEPTICUS
     Dosage: UNK, DAILY (INCREASED DAILY VPA DOSE)
  6. SODIUM THIOPENTAL MITSUBISHI [Concomitant]
     Indication: SEIZURE
     Dosage: UNK
     Route: 065
  7. LEVETIRACETAM. [Concomitant]
     Active Substance: LEVETIRACETAM
     Indication: STATUS EPILEPTICUS
  8. VALPROIC ACID. [Suspect]
     Active Substance: VALPROIC ACID
     Dosage: 600 MG, TID
     Route: 040
  9. PIPERACILLIN/TAZOBACTAM [Suspect]
     Active Substance: PIPERACILLIN SODIUM\TAZOBACTAM SODIUM
     Indication: DEVICE RELATED SEPSIS
     Dosage: UNK
     Route: 065
  10. CASPOFUNGIN [Suspect]
     Active Substance: CASPOFUNGIN
     Indication: DEVICE RELATED SEPSIS
     Dosage: UNK
     Route: 065
  11. MEROPENEM. [Interacting]
     Active Substance: MEROPENEM
     Indication: SEPSIS
     Dosage: UNK
     Route: 040
  12. MIDAZOLAM [Concomitant]
     Active Substance: MIDAZOLAM HYDROCHLORIDE
     Indication: STATUS EPILEPTICUS
  13. PROPOFOL. [Concomitant]
     Active Substance: PROPOFOL
     Indication: SEIZURE
     Dosage: UNK
     Route: 042
  14. VALPROIC ACID. [Suspect]
     Active Substance: VALPROIC ACID
     Indication: STATUS EPILEPTICUS
     Dosage: UNK, QD
     Route: 040
  15. CASPOFUNGIN [Suspect]
     Active Substance: CASPOFUNGIN
     Indication: SEPSIS
  16. MIDAZOLAM [Concomitant]
     Active Substance: MIDAZOLAM HYDROCHLORIDE
     Indication: SEIZURE
     Dosage: 10 MG, UNK (10MG/H)
     Route: 042
  17. LACOSAMIDE. [Concomitant]
     Active Substance: LACOSAMIDE
     Indication: STATUS EPILEPTICUS
  18. SODIUM VALPROATE [Concomitant]
     Active Substance: VALPROATE SODIUM
     Indication: SEIZURE
     Dosage: 1800 MG, QD
     Route: 040
  19. PHENYTOIN. [Concomitant]
     Active Substance: PHENYTOIN
     Indication: SEIZURE
     Dosage: 100 MG, 3X/DAY
     Route: 065
  20. PIPERACILLIN/TAZOBACTAM [Suspect]
     Active Substance: PIPERACILLIN SODIUM\TAZOBACTAM SODIUM
     Indication: SEPSIS
  21. VANCOMYCIN [Suspect]
     Active Substance: VANCOMYCIN
     Indication: DEVICE RELATED SEPSIS
     Dosage: UNK
     Route: 065
  22. SODIUM THIOPENTAL MITSUBISHI [Concomitant]
     Indication: STATUS EPILEPTICUS
  23. LEVETIRACETAM. [Concomitant]
     Active Substance: LEVETIRACETAM
     Indication: SEIZURE
     Dosage: 1500 MG, 2X/DAY
     Route: 065
  24. LACOSAMIDE. [Concomitant]
     Active Substance: LACOSAMIDE
     Indication: SEIZURE
     Dosage: 200 MG, QD
     Route: 065
  25. PHENYTOIN. [Concomitant]
     Active Substance: PHENYTOIN
     Indication: STATUS EPILEPTICUS

REACTIONS (3)
  - Drug level decreased [Unknown]
  - Drug ineffective [Fatal]
  - Labelled drug-drug interaction medication error [Unknown]
